FAERS Safety Report 18131959 (Version 1)
Quarter: 2020Q3

REPORT INFORMATION
  Report Type: Report from Study
  Country: None (occurrence: LB)
  Receive Date: 20200811
  Receipt Date: 20200811
  Transmission Date: 20201103
  Serious: Yes (Hospitalization, Other)
  Sender: FDA-Public Use
  Company Number: LB-ABBVIE-20K-093-3517201-00

PATIENT
  Age: 26 Year
  Sex: Male
  Weight: 55 kg

DRUGS (4)
  1. HUMIRA [Suspect]
     Active Substance: ADALIMUMAB
     Indication: CROHN^S DISEASE
     Dosage: 160MG LOADING DOSE
     Route: 058
     Dates: start: 20191216, end: 20191216
  2. HUMIRA [Suspect]
     Active Substance: ADALIMUMAB
     Dosage: 80MG LOADING DOSE
     Route: 058
     Dates: start: 20191230, end: 20191230
  3. HUMIRA [Suspect]
     Active Substance: ADALIMUMAB
     Indication: CROHN^S DISEASE
     Route: 058
     Dates: start: 20200113, end: 202004
  4. HUMIRA [Suspect]
     Active Substance: ADALIMUMAB
     Route: 058
     Dates: start: 202005

REACTIONS (2)
  - Intestinal obstruction [Recovered/Resolved]
  - Gastrointestinal inflammation [Recovered/Resolved]

NARRATIVE: CASE EVENT DATE: 202004
